FAERS Safety Report 25148721 (Version 2)
Quarter: 2025Q2

REPORT INFORMATION
  Report Type: Spontaneous
  Country: GB (occurrence: GB)
  Receive Date: 20250402
  Receipt Date: 20250430
  Transmission Date: 20250717
  Serious: Yes (Hospitalization, Other)
  Sender: AUROBINDO
  Company Number: GB-ADVANZ PHARMA-202312011674

PATIENT
  Sex: Male
  Weight: 54 kg

DRUGS (4)
  1. LAMOTRIGINE [Suspect]
     Active Substance: LAMOTRIGINE
     Indication: Epilepsy
     Dosage: 25 MILLIGRAM, ONCE A DAY (25 MG, QD)
     Route: 065
     Dates: start: 20250109, end: 20250123
  2. LANREOTIDE [Suspect]
     Active Substance: LANREOTIDE
     Indication: Neuroendocrine tumour
     Route: 058
     Dates: start: 20231211
  3. LANREOTIDE [Suspect]
     Active Substance: LANREOTIDE
     Route: 058
     Dates: start: 20250205
  4. CLOPIDOGREL [Concomitant]
     Active Substance: CLOPIDOGREL BISULFATE
     Indication: Anticoagulant therapy
     Route: 065

REACTIONS (23)
  - Blood calcium decreased [Unknown]
  - Blood potassium decreased [Unknown]
  - Circulatory collapse [Unknown]
  - Hepatic neuroendocrine tumour [Unknown]
  - Loss of consciousness [Recovered/Resolved]
  - Blood pressure increased [Not Recovered/Not Resolved]
  - Urinary tract infection [Unknown]
  - Pollakiuria [Unknown]
  - Chromaturia [Unknown]
  - Malaise [Unknown]
  - Body temperature abnormal [Unknown]
  - Treatment delayed [Unknown]
  - Muscular weakness [Unknown]
  - Hypertension [Unknown]
  - Illness [Recovering/Resolving]
  - Mobility decreased [Recovering/Resolving]
  - Rash papular [Recovered/Resolved]
  - Fatigue [Unknown]
  - Abdominal pain upper [Recovered/Resolved]
  - Injection site mass [Recovered/Resolved]
  - Diarrhoea [Recovered/Resolved]
  - Hypotension [Recovered/Resolved]
  - Blister [Recovered/Resolved]

NARRATIVE: CASE EVENT DATE: 20200501
